FAERS Safety Report 19509659 (Version 1)
Quarter: 2021Q3

REPORT INFORMATION
  Report Type: Spontaneous
  Country: US (occurrence: US)
  Receive Date: 20210708
  Receipt Date: 20210708
  Transmission Date: 20211014
  Serious: No
  Sender: FDA-Public Use
  Company Number: US-SA-2021SA217914

PATIENT
  Age: 65 Year
  Sex: Male

DRUGS (4)
  1. XTANDI [Suspect]
     Active Substance: ENZALUTAMIDE
     Dosage: TOOK 6 MONTHS
  2. JEVTANA [Suspect]
     Active Substance: CABAZITAXEL
     Indication: PRODUCT USED FOR UNKNOWN INDICATION
     Dosage: 0.6 ROUNDS
     Route: 065
  3. PROVENGE [Suspect]
     Active Substance: SIPULEUCEL-T
  4. TAXOTERE [Suspect]
     Active Substance: DOCETAXEL
     Dosage: 0.5 ROUNDS

REACTIONS (1)
  - Drug ineffective [Unknown]
